FAERS Safety Report 4711628-3 (Version None)
Quarter: 2005Q2

REPORT INFORMATION
  Report Type: 
  Country: None (occurrence: None)
  Receive Date: 20050629
  Receipt Date: 20050427
  Transmission Date: 20051028
  Serious: No
  Sender: FDA-Public Use
  Company Number: 05P-163-0290130-00

PATIENT
  Age: 47 Year
  Sex: Female
  Weight: 125.5 kg

DRUGS (7)
  1. HUMIRA [Suspect]
     Indication: RHEUMATOID ARTHRITIS
     Dosage: 40 MG, 1 IN 2 WK, SUBCUTANEOUS
     Route: 058
     Dates: start: 20041101
  2. PREDNISONE [Concomitant]
  3. CELECOXIB [Concomitant]
  4. PROPACET 100 [Concomitant]
  5. LEXAPRO [Concomitant]
  6. LANSOPRAZOLE [Concomitant]
  7. ALBUTEROL SULFATE HFA [Concomitant]

REACTIONS (3)
  - FURUNCLE [None]
  - STAPHYLOCOCCAL INFECTION [None]
  - UPPER RESPIRATORY TRACT INFECTION [None]
